FAERS Safety Report 5346101-5 (Version None)
Quarter: 2007Q2

REPORT INFORMATION
  Report Type: 
  Country: None (occurrence: None)
  Receive Date: 20070427
  Receipt Date: 20070122
  Transmission Date: 20071010
  Serious: No
  Sender: FDA-Public Use
  Company Number: 2007-US-000161

PATIENT
  Age: 13 Year
  Sex: Male
  Weight: 30.8 kg

DRUGS (2)
  1. INCRELEX [Suspect]
     Indication: INSULIN-LIKE GROWTH FACTOR DECREASED
     Dosage: 24 UT, BID, SUBCUTANEOUS
     Route: 058
     Dates: start: 20061101, end: 20070122
  2. INCRELEX [Suspect]
     Indication: INSULIN-LIKE GROWTH FACTOR DECREASED
     Dosage: 24 UT, BID, SUBCUTANEOUS
     Route: 058
     Dates: start: 20070124

REACTIONS (3)
  - ALOPECIA [None]
  - DIZZINESS [None]
  - MUSCULAR WEAKNESS [None]
